FAERS Safety Report 7744565-0 (Version None)
Quarter: 2011Q3

REPORT INFORMATION
  Report Type: 
  Country: None (occurrence: None)
  Receive Date: 20110912
  Receipt Date: 20110908
  Transmission Date: 20111222
  Serious: Yes (Hospitalization, Other)
  Sender: FDA-Public Use
  Company Number: SE-PFIZER INC-2011210456

PATIENT
  Age: 78 Year
  Sex: Female

DRUGS (1)
  1. PREDNISOLONE [Suspect]

REACTIONS (2)
  - SMALL INTESTINAL PERFORATION [None]
  - FALL [None]
